FAERS Safety Report 9420128 (Version 6)
Quarter: 2014Q4

REPORT INFORMATION
  Report Type: Report from Study
  Country: LB (occurrence: LB)
  Receive Date: 20130725
  Receipt Date: 20141020
  Transmission Date: 20150529
  Serious: Yes (Other)
  Sender: FDA-Public Use
  Company Number: LB-US-EMD SERONO, INC.-7188294

PATIENT
  Age: 39 Year
  Sex: Female
  Weight: 49 kg

DRUGS (7)
  1. OVITRELLE [Suspect]
     Active Substance: CHORIOGONADOTROPIN ALFA
     Indication: INFERTILITY
     Dates: start: 20121122, end: 20121122
  2. GONAL-F [Suspect]
     Active Substance: FOLLITROPIN
     Route: 058
     Dates: start: 20121121
  3. LUVERIS [Suspect]
     Active Substance: LUTROPIN ALFA
     Indication: INFERTILITY
     Route: 058
     Dates: start: 20121109
  4. LUVERIS [Suspect]
     Active Substance: LUTROPIN ALFA
     Route: 058
     Dates: start: 20121121
  5. ENOXAPARIN [Concomitant]
     Active Substance: ENOXAPARIN
     Indication: IMPLANT SITE REACTION
     Route: 058
     Dates: start: 20121126, end: 20121220
  6. CYCLOGEST [Concomitant]
     Active Substance: PROGESTERONE
     Indication: LUTEAL PHASE DEFICIENCY
     Route: 067
     Dates: start: 20121126, end: 20121220
  7. GONAL-F [Suspect]
     Active Substance: FOLLITROPIN
     Indication: INFERTILITY
     Route: 058
     Dates: start: 20121109

REACTIONS (1)
  - Biochemical pregnancy [Recovered/Resolved]

NARRATIVE: CASE EVENT DATE: 20121220
